FAERS Safety Report 25829151 (Version 1)
Quarter: 2025Q3

REPORT INFORMATION
  Report Type: Spontaneous
  Country: US (occurrence: US)
  Receive Date: 20250922
  Receipt Date: 20250922
  Transmission Date: 20251021
  Serious: Yes (Hospitalization)
  Sender: AMNEAL
  Company Number: US-AMNEAL PHARMACEUTICALS-2025-AMRX-03531

PATIENT
  Age: 79 Year
  Sex: Female
  Weight: 72.562 kg

DRUGS (4)
  1. ALOSETRON HYDROCHLORIDE [Suspect]
     Active Substance: ALOSETRON HYDROCHLORIDE
     Indication: Diarrhoea
     Dosage: 1 MG, 1 /DAY
     Route: 048
  2. HYDROCHLOROTHIAZIDE\OLMESARTAN MEDOXOMIL [Concomitant]
     Active Substance: HYDROCHLOROTHIAZIDE\OLMESARTAN MEDOXOMIL
     Indication: Product used for unknown indication
     Route: 065
  3. VILAZODONE [Concomitant]
     Active Substance: VILAZODONE
     Indication: Product used for unknown indication
     Route: 065
  4. OXYBUTYNIN [Concomitant]
     Active Substance: OXYBUTYNIN
     Indication: Product used for unknown indication
     Route: 065

REACTIONS (5)
  - Ascites [Unknown]
  - Stomach mass [Unknown]
  - Asthenia [Unknown]
  - Adverse drug reaction [Unknown]
  - Constipation [Unknown]
